FAERS Safety Report 17425847 (Version 2)
Quarter: 2020Q3

REPORT INFORMATION
  Report Type: Spontaneous
  Country: TR (occurrence: TR)
  Receive Date: 20200217
  Receipt Date: 20200914
  Transmission Date: 20201102
  Serious: Yes (Death, Other)
  Sender: FDA-Public Use
  Company Number: TR-BAYER-2020-024151

PATIENT
  Sex: Male

DRUGS (1)
  1. NEXAVAR [Suspect]
     Active Substance: SORAFENIB
     Indication: HEPATOCELLULAR CARCINOMA

REACTIONS (7)
  - Palmar-plantar erythrodysaesthesia syndrome [None]
  - Toxicity to various agents [None]
  - Skin exfoliation [None]
  - Death [Fatal]
  - Stomatitis [None]
  - Oral mucosal exfoliation [None]
  - Mouth haemorrhage [None]
